FAERS Safety Report 9670497 (Version 4)
Quarter: 2013Q4

REPORT INFORMATION
  Report Type: Report from Study
  Country: CA (occurrence: CA)
  Receive Date: 20131106
  Receipt Date: 20131224
  Transmission Date: 20140711
  Serious: Yes (Other)
  Sender: FDA-Public Use
  Company Number: CA-ROCHE-1112304

PATIENT
  Age: 72 Year
  Sex: Female
  Weight: 38.6 kg

DRUGS (13)
  1. RITUXAN [Suspect]
     Indication: RHEUMATOID ARTHRITIS
     Route: 042
     Dates: start: 20091002
  2. RITUXAN [Suspect]
     Route: 042
     Dates: start: 20091002
  3. RITUXAN [Suspect]
     Route: 042
     Dates: start: 20131218
  4. NAPROXEN [Concomitant]
  5. LANSOPRAZOLE [Concomitant]
     Indication: PROPHYLAXIS AGAINST GASTROINTESTINAL ULCER
  6. FLAX [Concomitant]
  7. SELENIUM [Concomitant]
  8. TRAMADOL [Concomitant]
     Dosage: PRN
     Route: 065
  9. DIPHENHYDRAMINE HCL [Concomitant]
     Indication: PREMEDICATION
     Route: 048
     Dates: start: 20091002
  10. ACETAMINOPHEN [Concomitant]
     Indication: PREMEDICATION
     Route: 048
     Dates: start: 20110413
  11. ACETAMINOPHEN [Concomitant]
     Route: 048
     Dates: start: 20091002, end: 20091016
  12. METHYLPREDNISOLONE [Concomitant]
     Indication: PREMEDICATION
  13. VITAMIN E [Concomitant]

REACTIONS (7)
  - Blood pressure decreased [Unknown]
  - Bronchiectasis [Unknown]
  - Pseudomonas infection [Unknown]
  - Chronic obstructive pulmonary disease [Unknown]
  - Blood pressure increased [Recovered/Resolved]
  - Weight decreased [Not Recovered/Not Resolved]
  - Blood pressure fluctuation [Unknown]
